FAERS Safety Report 4350858-X (Version None)
Quarter: 2004Q2

REPORT INFORMATION
  Report Type: 
  Country: None (occurrence: None)
  Receive Date: 20040428
  Receipt Date: 20040415
  Transmission Date: 20050107
  Serious: Yes (Death)
  Sender: FDA-Public Use
  Company Number: 04H-163-0258265-00

PATIENT
  Age: 39 Year
  Sex: Male

DRUGS (1)
  1. FENTANYL CITRATE [Suspect]
     Indication: DRUG USE FOR UNKNOWN INDICATION
     Dosage: EPIDURAL
     Route: 008
     Dates: start: 20030301, end: 20030301

REACTIONS (1)
  - DRUG TOXICITY [None]
